FAERS Safety Report 23392855 (Version 2)
Quarter: 2024Q1

REPORT INFORMATION
  Report Type: Report from Study
  Country: US (occurrence: US)
  Receive Date: 20240111
  Receipt Date: 20240206
  Transmission Date: 20240409
  Serious: Yes (Other)
  Sender: FDA-Public Use
  Company Number: US-JNJFOC-20240105549

PATIENT
  Age: 72 Year
  Sex: Female
  Weight: 81.72 kg

DRUGS (1)
  1. STELARA [Suspect]
     Active Substance: USTEKINUMAB
     Indication: Psoriasis
     Route: 058

REACTIONS (6)
  - Gastric ulcer [Unknown]
  - Sinus operation [Not Recovered/Not Resolved]
  - Decubitus ulcer [Unknown]
  - Mouth breathing [Unknown]
  - Psoriasis [Unknown]
  - Inappropriate schedule of product administration [Unknown]
